FAERS Safety Report 7600208-8 (Version None)
Quarter: 2011Q3

REPORT INFORMATION
  Report Type: 
  Country: None (occurrence: None)
  Receive Date: 20110711
  Receipt Date: 20110629
  Transmission Date: 20111222
  Serious: Yes (Hospitalization)
  Sender: FDA-Public Use
  Company Number: DE-AMGEN-KDC444059

PATIENT
  Age: 53 Year
  Sex: Male
  Weight: 99 kg

DRUGS (2)
  1. VITAMIN B-12 [Concomitant]
  2. ROMIPLOSTIM [Suspect]
     Indication: MYELODYSPLASTIC SYNDROME
     Dosage: UNK UNK, QWK
     Route: 058
     Dates: start: 20100531, end: 20101004

REACTIONS (1)
  - MESENTERIC ARTERY THROMBOSIS [None]
